FAERS Safety Report 4822917-6 (Version None)
Quarter: 2005Q4

REPORT INFORMATION
  Report Type: 
  Country: None (occurrence: None)
  Receive Date: 20051104
  Receipt Date: 20051026
  Transmission Date: 20060501
  Serious: Yes (Hospitalization)
  Sender: FDA-Public Use
  Company Number: 2005148532

PATIENT
  Sex: Female

DRUGS (1)
  1. LIPITOR [Suspect]
     Indication: ILL-DEFINED DISORDER

REACTIONS (6)
  - ANXIETY [None]
  - DEPRESSION [None]
  - FRUSTRATION [None]
  - HYPERTENSION [None]
  - POST PROCEDURAL COMPLICATION [None]
  - VASCULAR BYPASS GRAFT [None]
